FAERS Safety Report 9772679 (Version 1)
Quarter: 2013Q4

REPORT INFORMATION
  Report Type: Spontaneous
  Country: FR (occurrence: FR)
  Receive Date: 20131219
  Receipt Date: 20131219
  Transmission Date: 20140711
  Serious: Yes (Hospitalization)
  Sender: FDA-Public Use
  Company Number: FR-PFIZER INC-2013360312

PATIENT
  Age: 75 Year
  Sex: Male

DRUGS (14)
  1. LYRICA [Suspect]
     Dosage: 50 MG, 2X/DAY
     Route: 048
     Dates: start: 20131018, end: 20131029
  2. LYRICA [Suspect]
     Dosage: 75 MG, 2X/DAY
     Route: 048
     Dates: start: 20131030, end: 20131110
  3. VANCOMYCINE [Suspect]
     Indication: ENDOCARDITIS STAPHYLOCOCCAL
     Dosage: 3.2 MG PER 24 HOURS
     Dates: start: 20131102, end: 20131107
  4. XATRAL [Suspect]
     Dosage: 10 MG, DAILY
     Route: 048
     Dates: end: 20131110
  5. RIFAMPICIN [Suspect]
     Indication: ENDOCARDITIS STAPHYLOCOCCAL
     Dosage: 900 MG, DAILY
     Dates: start: 20131102, end: 20131107
  6. INEXIUM [Suspect]
     Dosage: 40 MG, DAILY
     Route: 048
     Dates: start: 20130808, end: 20131110
  7. CELECTOL [Concomitant]
     Dosage: 200 MG, DAILY
  8. FLECAINE [Concomitant]
     Dosage: 100 MG, DAILY
  9. TAHOR [Concomitant]
     Dosage: 20 MG, DAILY
  10. KARDEGIC [Concomitant]
     Dosage: 75 MG, DAILY
  11. DIFFU K [Concomitant]
     Dosage: 1 DOSAGE FORM IN THE MORNING AND AT MIDDAY AND 2 DOSAGE FORMS IN THE EVENING
  12. COVERSYL [Concomitant]
     Dosage: 2.5 MG, DAILY
  13. SEROPLEX [Concomitant]
     Dosage: 20 MG, DAILY
  14. FORLAX [Concomitant]
     Dosage: 4000

REACTIONS (1)
  - Agranulocytosis [Recovered/Resolved]
